FAERS Safety Report 9776362 (Version 3)
Quarter: 2014Q1

REPORT INFORMATION
  Report Type: Report from Study
  Country: FR (occurrence: FR)
  Receive Date: 20131220
  Receipt Date: 20140213
  Transmission Date: 20141002
  Serious: No
  Sender: FDA-Public Use
  Company Number: FR-PFIZER INC-2013356693

PATIENT
  Age: 54 Year
  Sex: Female
  Weight: 39 kg

DRUGS (5)
  1. CRIZOTINIB [Suspect]
     Indication: NON-SMALL CELL LUNG CANCER
     Dosage: 250 MG, 2X/DAY
     Route: 048
     Dates: start: 20120403, end: 20131213
  2. IMODIUM [Concomitant]
     Indication: DIARRHOEA
     Dosage: UNK, AS NEEDED
     Route: 048
  3. DAFALGAN [Concomitant]
     Indication: PAIN
     Dosage: UNK
     Route: 048
  4. CORTANCYL [Concomitant]
     Dosage: 10 MG, DAILY
     Route: 048
  5. INNOHEP [Concomitant]
     Indication: PROPHYLAXIS
     Dosage: 0.5 ML, DAILY
     Route: 058

REACTIONS (2)
  - Disease progression [Recovered/Resolved]
  - Non-small cell lung cancer [Recovered/Resolved]
